FAERS Safety Report 15152870 (Version 1)
Quarter: 2018Q3

REPORT INFORMATION
  Report Type: Spontaneous
  Country: US (occurrence: US)
  Receive Date: 20180717
  Receipt Date: 20180717
  Transmission Date: 20181010
  Serious: Yes (Death, Hospitalization)
  Sender: FDA-Public Use
  Company Number: US-TEVA-2018-US-926555

PATIENT
  Age: 5 Decade
  Sex: Male

DRUGS (4)
  1. ASPIRIN. [Suspect]
     Active Substance: ASPIRIN
     Indication: ANTICOAGULANT THERAPY
     Route: 065
  2. WARFARIN [Suspect]
     Active Substance: WARFARIN
     Indication: ANTICOAGULANT THERAPY
     Route: 065
  3. CLOPIDOGREL [Suspect]
     Active Substance: CLOPIDOGREL BISULFATE
     Indication: ANTICOAGULANT THERAPY
     Route: 065
  4. HEPARIN [Suspect]
     Active Substance: HEPARIN SODIUM
     Indication: ANTICOAGULANT THERAPY
     Route: 065

REACTIONS (5)
  - Stenosis [Recovering/Resolving]
  - Gastrointestinal haemorrhage [Unknown]
  - Cardiogenic shock [Recovering/Resolving]
  - Haematoma [Recovering/Resolving]
  - Haemorrhage intracranial [Fatal]
